FAERS Safety Report 6468627-3 (Version None)
Quarter: 2009Q4

REPORT INFORMATION
  Report Type: 
  Country: None (occurrence: None)
  Receive Date: 20091119
  Receipt Date: 20090724
  Transmission Date: 20100525
  Serious: No
  Sender: FDA-Public Use
  Company Number: WAES 0907USA04438

PATIENT
  Sex: Male

DRUGS (2)
  1. JANUVIA [Suspect]
     Indication: TYPE 2 DIABETES MELLITUS
     Dosage: 100MG/DAILY/PO
     Route: 048
  2. AVAPRO [Concomitant]

REACTIONS (4)
  - DECREASED IMMUNE RESPONSIVENESS [None]
  - HERPES ZOSTER [None]
  - INFECTION [None]
  - SINUSITIS [None]
